FAERS Safety Report 4472580-1 (Version None)
Quarter: 2004Q4

REPORT INFORMATION
  Report Type: 
  Country: None (occurrence: None)
  Receive Date: 20041008
  Receipt Date: 20040510
  Transmission Date: 20050328
  Serious: Yes (Death, Life-Threatening, Hospitalization)
  Sender: FDA-Public Use
  Company Number: F01200401058

PATIENT
  Age: 67 Year
  Sex: Male

DRUGS (6)
  1. OXALIPLATIN - SOLUTION - 265 MG [Suspect]
     Indication: COLORECTAL CANCER METASTATIC
     Dosage: 265 MG Q3W INTRAVENOUS NOS - TIME TO ONSET : 2 WEEKS 2 DAYS
     Route: 042
     Dates: start: 20040405, end: 20040405
  2. CAPECITABINE - TABLET - 2000 MG/M2 [Suspect]
     Dosage: 2050 MG TWICE DAILY PER ORAL FROM D1 TO D15, Q3W ORAL-TIME TO ONSET : 2 WEEKS 2 DAYS
     Route: 048
     Dates: start: 20040405, end: 20040419
  3. WARFARIN SODIUM [Concomitant]
  4. CODEINE PHOSPHATE [Concomitant]
  5. CIPROFLOXACIN [Concomitant]
  6. ENOXAPARIN SODIUM [Concomitant]

REACTIONS (5)
  - ANAL DISCOMFORT [None]
  - DIARRHOEA [None]
  - INTERNATIONAL NORMALISED RATIO INCREASED [None]
  - PULMONARY EMBOLISM [None]
  - SUDDEN DEATH [None]
